FAERS Safety Report 8592344-7 (Version None)
Quarter: 2012Q3

REPORT INFORMATION
  Report Type: 
  Country: None (occurrence: None)
  Receive Date: 20120814
  Receipt Date: 20120803
  Transmission Date: 20120928
  Serious: Yes (Death)
  Sender: FDA-Public Use
  Company Number: JP-PFIZER INC-2012086284

PATIENT
  Age: 71 Year
  Sex: Male
  Weight: 45 kg

DRUGS (26)
  1. IRINOTECAN HYDROCHLORIDE [Suspect]
     Indication: SMALL CELL LUNG CANCER STAGE UNSPECIFIED
     Dosage: 70 MG, SINGLE
     Route: 041
     Dates: start: 20111221, end: 20111221
  2. NEU-UP [Concomitant]
     Dosage: UNK
     Dates: start: 20120313, end: 20120316
  3. AMBISOME [Concomitant]
     Dosage: UNK
     Dates: start: 20120314, end: 20120316
  4. IRINOTECAN HYDROCHLORIDE [Suspect]
     Dosage: 60 MG, SINGLE
     Route: 041
     Dates: start: 20120306, end: 20120306
  5. CARBOPLATIN [Suspect]
     Indication: SMALL CELL LUNG CANCER STAGE UNSPECIFIED
     Dosage: 220 MG, SINGLE
     Route: 041
     Dates: start: 20111221, end: 20111221
  6. LANSOPRAZOLE [Concomitant]
     Dosage: UNK
     Dates: start: 20111220, end: 20120311
  7. IRINOTECAN HYDROCHLORIDE [Suspect]
     Dosage: 60 MG, SINGLE
     Route: 041
     Dates: start: 20120228, end: 20120228
  8. CARBOPLATIN [Suspect]
     Dosage: 210 MG, SINGLE
     Route: 041
     Dates: start: 20120228, end: 20120228
  9. DECADRON PHOSPHATE [Concomitant]
     Dosage: UNK
     Dates: start: 20111221, end: 20120306
  10. VANCOMYCIN HYDROCHLORIDE [Concomitant]
     Dosage: UNK
     Dates: start: 20120312, end: 20120316
  11. ZYVOX [Concomitant]
     Dosage: UNK
     Dates: start: 20120316, end: 20120316
  12. CARBOPLATIN [Suspect]
     Dosage: 220 MG, SINGLE
     Route: 041
     Dates: start: 20120120, end: 20120120
  13. KREMEZIN [Concomitant]
     Dosage: UNK
     Dates: start: 20111220, end: 20120313
  14. PLATELETS, HUMAN BLOOD [Concomitant]
     Dosage: UNK
     Dates: start: 20120310, end: 20120312
  15. ALLOPURINOL [Concomitant]
     Dosage: UNK
     Dates: start: 20111220, end: 20120311
  16. MAXIPIME [Concomitant]
     Dosage: UNK
     Dates: start: 20120315, end: 20120316
  17. LOPERAMIDE HYDROCHLORIDE [Concomitant]
     Dosage: UNK
     Dates: start: 20120105
  18. ITRACONAZOLE [Concomitant]
     Dosage: UNK
     Dates: start: 20120215, end: 20120314
  19. TARGOCID [Concomitant]
     Dosage: UNK
     Dates: start: 20120307, end: 20120310
  20. MEROPENEM [Concomitant]
     Dosage: UNK
     Dates: start: 20120307, end: 20120310
  21. BIO THREE [Concomitant]
     Dosage: UNK
     Dates: start: 20120311, end: 20120316
  22. IRINOTECAN HYDROCHLORIDE [Suspect]
     Dosage: 70 MG, SINGLE
     Route: 041
     Dates: start: 20111228, end: 20111228
  23. IRINOTECAN HYDROCHLORIDE [Suspect]
     Dosage: 70 MG, SINGLE
     Route: 041
     Dates: start: 20120120, end: 20120120
  24. IRINOTECAN HYDROCHLORIDE [Suspect]
     Dosage: 70 MG, SINGLE
     Route: 041
     Dates: start: 20120127, end: 20120127
  25. GRAN [Concomitant]
     Dosage: UNK
     Dates: start: 20120307, end: 20120312
  26. MEDROL [Concomitant]
     Dosage: UNK
     Dates: start: 20111220, end: 20120316

REACTIONS (6)
  - THROMBOCYTOPENIA [None]
  - LEUKOPENIA [None]
  - DIARRHOEA [None]
  - GASTROENTERITIS STAPHYLOCOCCAL [None]
  - HAEMOGLOBIN DECREASED [None]
  - FEBRILE NEUTROPENIA [None]
